FAERS Safety Report 16690333 (Version 3)
Quarter: 2019Q4

REPORT INFORMATION
  Report Type: Spontaneous
  Country: BE (occurrence: BE)
  Receive Date: 20190809
  Receipt Date: 20191004
  Transmission Date: 20200122
  Serious: Yes (Hospitalization)
  Sender: FDA-Public Use
  Company Number: BE-BAXTER-2019BAX015308

PATIENT
  Age: 3 Month
  Sex: Female
  Weight: 6.5 kg

DRUGS (4)
  1. TRIMETOPRIM [Concomitant]
     Active Substance: TRIMETHOPRIM
     Indication: VESICOURETERIC REFLUX
     Route: 048
     Dates: start: 201903
  2. TRIMETOPRIM [Concomitant]
     Active Substance: TRIMETHOPRIM
     Indication: DRUG THERAPY
     Route: 065
  3. PLASMA-LYTE 148 AND DEXTROSE [Suspect]
     Active Substance: DEXTROSE MONOHYDRATE\MAGNESIUM CHLORIDE\POTASSIUM CHLORIDE\SODIUM ACETATE\SODIUM CHLORIDE\SODIUM GLUCONATE
     Indication: FASTING
     Route: 042
     Dates: start: 20190608, end: 20190609
  4. PLASMA-LYTE 148 AND DEXTROSE [Suspect]
     Active Substance: DEXTROSE MONOHYDRATE\MAGNESIUM CHLORIDE\POTASSIUM CHLORIDE\SODIUM ACETATE\SODIUM CHLORIDE\SODIUM GLUCONATE
     Indication: PARENTERAL NUTRITION
     Route: 065

REACTIONS (1)
  - Generalised oedema [Recovered/Resolved]

NARRATIVE: CASE EVENT DATE: 20190608
